FAERS Safety Report 14613137 (Version 2)
Quarter: 2018Q1

REPORT INFORMATION
  Report Type: Report from Study
  Country: US (occurrence: US)
  Receive Date: 20180308
  Receipt Date: 20180323
  Transmission Date: 20180509
  Serious: Yes (Hospitalization)
  Sender: FDA-Public Use
  Company Number: US-TEVA-2018-US-866562

PATIENT
  Age: 55 Year
  Sex: Female

DRUGS (4)
  1. METHADONE [Suspect]
     Active Substance: METHADONE HYDROCHLORIDE
     Indication: ARTHROPOD STING
     Dosage: TWO DOSES OF 50 MG EACH
     Route: 065
  2. FANTANYL [Suspect]
     Active Substance: FENTANYL
     Indication: ARTHROPOD STING
     Route: 065
  3. MIDAZOLAM [Concomitant]
     Active Substance: MIDAZOLAM HYDROCHLORIDE
     Route: 065
  4. OXYCODONE [Suspect]
     Active Substance: OXYCODONE
     Dosage: PERIODIC
     Route: 065

REACTIONS (7)
  - Respiratory acidosis [Unknown]
  - Pneumonia aspiration [Unknown]
  - Respiratory failure [Unknown]
  - Nausea [Unknown]
  - Wrong drug administered [Unknown]
  - Vomiting [Unknown]
  - Coma [Unknown]
